FAERS Safety Report 21285490 (Version 4)
Quarter: 2022Q4

REPORT INFORMATION
  Report Type: Spontaneous
  Country: US (occurrence: US)
  Receive Date: 20220902
  Receipt Date: 20221014
  Transmission Date: 20230112
  Serious: Yes (Hospitalization, Other)
  Sender: FDA-Public Use
  Company Number: US-ALXN-A202210282

PATIENT
  Age: 66 Year
  Sex: Female

DRUGS (1)
  1. SOLIRIS [Suspect]
     Active Substance: ECULIZUMAB
     Indication: Myasthenia gravis
     Dosage: 1200 MG, Q2W
     Route: 065
     Dates: start: 20220417

REACTIONS (2)
  - Pneumonia aspiration [Recovered/Resolved]
  - Myasthenia gravis crisis [Recovering/Resolving]

NARRATIVE: CASE EVENT DATE: 20220825
